FAERS Safety Report 7221144-5 (Version None)
Quarter: 2011Q1

REPORT INFORMATION
  Report Type: 
  Country: None (occurrence: None)
  Receive Date: 20110112
  Receipt Date: 20110104
  Transmission Date: 20110831
  Serious: Yes (Other)
  Sender: FDA-Public Use
  Company Number: US-PFIZER INC-2011002286

PATIENT
  Sex: Female
  Weight: 66 kg

DRUGS (1)
  1. EFFEXOR XR [Suspect]
     Indication: DEPRESSION
     Dosage: 225 MG, 1X/DAY
     Dates: start: 20050101, end: 20101222

REACTIONS (18)
  - DRUG WITHDRAWAL SYNDROME [None]
  - TINNITUS [None]
  - HYPERHIDROSIS [None]
  - LOW DENSITY LIPOPROTEIN INCREASED [None]
  - HIGH DENSITY LIPOPROTEIN INCREASED [None]
  - IRRITABILITY [None]
  - PAIN [None]
  - VERTIGO [None]
  - NAUSEA [None]
  - HEAD DISCOMFORT [None]
  - BLOOD TRIGLYCERIDES INCREASED [None]
  - DEPRESSION [None]
  - COGNITIVE DISORDER [None]
  - THINKING ABNORMAL [None]
  - HYPERTENSION [None]
  - DIARRHOEA [None]
  - INJURY [None]
  - INFLAMMATION [None]
